FAERS Safety Report 13128574 (Version 1)
Quarter: 2017Q1

REPORT INFORMATION
  Report Type: Spontaneous
  Country: US (occurrence: US)
  Receive Date: 20170118
  Receipt Date: 20170118
  Transmission Date: 20170428
  Serious: No
  Sender: FDA-Public Use
  Company Number: US-ASTRAZENECA-2017SE03204

PATIENT
  Age: 661 Month
  Sex: Male

DRUGS (12)
  1. IBUPROFEN. [Concomitant]
     Active Substance: IBUPROFEN
     Dosage: DAILY
  2. CLONAZEPAM. [Concomitant]
     Active Substance: CLONAZEPAM
     Indication: ANXIETY
     Dosage: (1 MG)1 TABLET TWO TIMES A DAY
     Dates: start: 2013
  3. NADRIL [Concomitant]
     Indication: DEPRESSION
     Dosage: 15 MG TWO TIMES PER DAY
  4. PREDNISONE. [Concomitant]
     Active Substance: PREDNISONE
     Indication: LIMB INJURY
     Dosage: 20 MG, TAKE 2 WITH FOOD
  5. XANAX [Concomitant]
     Active Substance: ALPRAZOLAM
     Indication: ANXIETY
     Dosage: 5 MG, ONE TO THREE DAILY (AS NEEDED)
     Dates: start: 2007
  6. PREDNISONE. [Concomitant]
     Active Substance: PREDNISONE
     Indication: PAIN
     Dosage: 20 MG, TAKE 2 WITH FOOD
  7. PREDNISONE. [Concomitant]
     Active Substance: PREDNISONE
     Indication: SWELLING
     Dosage: 20 MG, TAKE 2 WITH FOOD
  8. SEROQUEL [Suspect]
     Active Substance: QUETIAPINE FUMARATE
     Indication: INSOMNIA
     Dosage: 300 MG ONE PER NIGHT
     Route: 048
     Dates: start: 2013
  9. AMLODIPINE BESYLATE. [Concomitant]
     Active Substance: AMLODIPINE BESYLATE
     Indication: BLOOD PRESSURE MEASUREMENT
     Dosage: 5 MG IN MORNING
  10. PREDNISONE. [Concomitant]
     Active Substance: PREDNISONE
     Indication: THINKING ABNORMAL
     Dosage: 20 MG, TAKE 2 WITH FOOD
  11. XANAX [Concomitant]
     Active Substance: ALPRAZOLAM
     Indication: AGORAPHOBIA
     Dosage: 5 MG, ONE TO THREE DAILY (AS NEEDED)
     Dates: start: 2007
  12. ASPIRIN. [Concomitant]
     Active Substance: ASPIRIN
     Indication: CARDIAC DISORDER
     Dates: start: 201611

REACTIONS (6)
  - Limb injury [Unknown]
  - Memory impairment [Unknown]
  - Malaise [Unknown]
  - Crying [Unknown]
  - Angina pectoris [Unknown]
  - Sleep disorder [Unknown]

NARRATIVE: CASE EVENT DATE: 201611
